FAERS Safety Report 6951777 (Version 4)
Quarter: 2013Q3

REPORT INFORMATION
  Report Type: Spontaneous
  Country: US (occurrence: US)
  Receive Date: 20090325
  Receipt Date: 20130829
  Transmission Date: 20140515
  Serious: Yes (Hospitalization, Other)
  Sender: FDA-Public Use
  Company Number: US-ELI_LILLY_AND_COMPANY-US200903003572

PATIENT
  Sex: Female

DRUGS (22)
  1. EVISTA [Suspect]
     Indication: OSTEOPOROSIS
     Dosage: 60 MG, DAILY (1/D)
     Route: 065
     Dates: start: 199706
  2. EVISTA [Suspect]
     Dosage: UNK, UNKNOWN
     Route: 065
  3. EVISTA [Suspect]
     Dosage: UNK, UNKNOWN
     Route: 065
     Dates: end: 201305
  4. DILTIAZEM [Concomitant]
     Dosage: 240 MG, DAILY (1/D)
     Route: 065
  5. LISINOPRIL [Concomitant]
     Dosage: 10 MG, DAILY (1/D)
     Route: 065
  6. TRIAMTERENE AND HYDROCHLOROTHIAZID [Concomitant]
     Dosage: 37.5 MG, DAILY (1/D)
     Route: 065
  7. TRIAMTERENE AND HYDROCHLOROTHIAZID [Concomitant]
     Dosage: 25 MG, DAILY (1/D)
     Route: 065
  8. ACIPHEX [Concomitant]
     Dosage: 20 MG, DAILY (1/D)
     Route: 065
  9. POTASSIUM [Concomitant]
     Dosage: 3.75 ML, DAILY (1/D)
     Route: 065
  10. CHLORDIAZEPOXIDE W/CLIDINIUM [Concomitant]
     Dosage: 2.5 MG, OTHER
     Route: 065
  11. ASPIRIN [Concomitant]
     Dosage: 81 MG, DAILY (1/D)
     Route: 065
  12. METAMUCIL [Concomitant]
     Dosage: UNK, DAILY (1/D)
     Route: 065
  13. ESTRACE [Concomitant]
     Dosage: UNK, MONTHLY (1/M)
     Route: 065
  14. NYSTATIN [Concomitant]
     Dosage: UNK, AS NEEDED
     Route: 065
  15. CALCIUM CITRATE WITH VITAMIN D [Concomitant]
     Dosage: UNK, UNKNOWN
     Route: 065
  16. OMEGA 3 [Concomitant]
     Dosage: 1000 MG, DAILY (1/D)
     Route: 065
  17. CENTRUM SILVER [Concomitant]
     Dosage: UNK, DAILY (1/D)
     Route: 065
  18. TYLENOL EXTRA STRENGTH [Concomitant]
     Dosage: 500 MG, DAILY (1/D)
     Route: 065
  19. GLUCOSAMINE W/CHONDROITIN [Concomitant]
     Dosage: UNK, DAILY (1/D)
     Route: 065
  20. OCUVITE [Concomitant]
     Dosage: UNK, UNKNOWN
     Route: 065
  21. B-COMPLEX [Concomitant]
     Dosage: UNK, UNKNOWN
     Route: 065
  22. CLOPIDOGREL [Concomitant]
     Dosage: 75 MG, QD
     Route: 065

REACTIONS (8)
  - Pancreatitis acute [Unknown]
  - Cholelithiasis [Recovered/Resolved]
  - Myocardial infarction [Unknown]
  - Gastrointestinal disorder [Recovered/Resolved]
  - Ulcer [Recovered/Resolved]
  - Gastrooesophageal reflux disease [Recovered/Resolved]
  - Cholelithiasis [Recovered/Resolved]
  - Irritable bowel syndrome [Unknown]
